FAERS Safety Report 7291478-7 (Version None)
Quarter: 2011Q1

REPORT INFORMATION
  Report Type: 
  Country: None (occurrence: None)
  Receive Date: 20110214
  Receipt Date: 20110201
  Transmission Date: 20110831
  Serious: Yes (Other)
  Sender: FDA-Public Use
  Company Number: US-ELI_LILLY_AND_COMPANY-US201012000025

PATIENT
  Sex: Female

DRUGS (3)
  1. CYMBALTA [Suspect]
     Indication: FIBROMYALGIA
     Dosage: 30 MG, DAILY (1/D)
  2. CYMBALTA [Suspect]
     Dosage: 60 MG, DAILY (1/D)
  3. NEURONTIN [Concomitant]

REACTIONS (16)
  - COGNITIVE DISORDER [None]
  - CONTUSION [None]
  - HEAD INJURY [None]
  - DIZZINESS [None]
  - LACERATION [None]
  - GAIT DISTURBANCE [None]
  - FALL [None]
  - SOMNOLENCE [None]
  - CEREBROVASCULAR ACCIDENT [None]
  - FATIGUE [None]
  - EYE PAIN [None]
  - ACTIVITIES OF DAILY LIVING IMPAIRED [None]
  - DYSARTHRIA [None]
  - MEMORY IMPAIRMENT [None]
  - DYSGRAPHIA [None]
  - MUSCULAR WEAKNESS [None]
